FAERS Safety Report 6492610-5 (Version None)
Quarter: 2009Q4

REPORT INFORMATION
  Report Type: 
  Country: None (occurrence: None)
  Receive Date: 20091211
  Receipt Date: 20091211
  Transmission Date: 20100525
  Serious: Yes (Other)
  Sender: FDA-Public Use
  Company Number: None

PATIENT
  Sex: Female
  Weight: 65.7716 kg

DRUGS (1)
  1. MUCINEX [Suspect]
     Indication: PULMONARY CONGESTION
     Dosage: 600 MG. 2 A.M.  2 P.M.
     Dates: start: 20091119

REACTIONS (4)
  - ABNORMAL BEHAVIOUR [None]
  - FEELING ABNORMAL [None]
  - INSOMNIA [None]
  - PERSECUTORY DELUSION [None]
